FAERS Safety Report 6196381-1 (Version None)
Quarter: 2009Q2

REPORT INFORMATION
  Report Type: 
  Country: None (occurrence: None)
  Receive Date: 20090520
  Receipt Date: 20090429
  Transmission Date: 20091009
  Serious: Yes (Death, Other)
  Sender: FDA-Public Use
  Company Number: US-ASTRAZENECA-2009AC01235

PATIENT
  Age: 48 Year
  Sex: Male
  Weight: 77 kg

DRUGS (5)
  1. LIDOCAINE [Suspect]
     Indication: VENTRICULAR TACHYCARDIA
     Dosage: 80 MG + 80 MG IV BOLUS
     Route: 040
  2. LIDOCAINE [Suspect]
     Indication: ACUTE MYOCARDIAL INFARCTION
     Dosage: 80 MG + 80 MG IV BOLUS
     Route: 040
  3. LIDOCAINE [Suspect]
     Dosage: 3.3-6.7 MG/MIN
     Route: 042
  4. LIDOCAINE [Suspect]
     Dosage: 3.3-6.7 MG/MIN
     Route: 042
  5. DIGOXIN [Concomitant]

REACTIONS (6)
  - CARDIAC ARREST [None]
  - CHEST PAIN [None]
  - CONVULSION [None]
  - EUPHORIC MOOD [None]
  - MUSCLE TWITCHING [None]
  - RESPIRATORY ARREST [None]
